FAERS Safety Report 6058180-0 (Version None)
Quarter: 2009Q1

REPORT INFORMATION
  Report Type: 
  Country: None (occurrence: None)
  Receive Date: 20090127
  Receipt Date: 20090127
  Transmission Date: 20090719
  Serious: Yes (Other)
  Sender: FDA-Public Use
  Company Number: None

PATIENT
  Age: 59 Year
  Sex: Female
  Weight: 83 kg

DRUGS (22)
  1. ENOXAPARIN SODIUM [Suspect]
     Indication: THROMBOSIS PROPHYLAXIS
     Dosage: 20 MG OR 40 MG - SUBCUTANEOUS
     Route: 058
     Dates: start: 20081111, end: 20081115
  2. ACETAMINOPHEN [Concomitant]
  3. DEXTRAN INJ [Concomitant]
  4. PLASMODEX [Concomitant]
  5. CLONIDINE HCL [Concomitant]
  6. TRANEXAMIC ACID [Concomitant]
  7. CLINDAMYCIN [Concomitant]
  8. AMINOPHYLLIN [Concomitant]
  9. BETAMETHASONE SODIUM PHOSPHATE [Concomitant]
  10. OXYCODONE HYDROCHLORIDE [Concomitant]
  11. ACETYLCYSTEINE [Concomitant]
  12. TERBUTALINE SULFATE [Concomitant]
  13. CITALOPRAM HYDROBROMIDE [Concomitant]
  14. AMILORIDE HCL AND HYDROCHLOROTHIAZIDE [Concomitant]
  15. ATENOLOL [Concomitant]
  16. ZOLPIDEM TARTRATE [Concomitant]
  17. ZOPICLONE [Concomitant]
  18. MIANSERIN [Concomitant]
  19. OMEPRAZOLE [Concomitant]
  20. BUDESONIDE [Concomitant]
  21. KETOBEMIDONE [Concomitant]
  22. CLEMASTINE FUMARATE [Concomitant]

REACTIONS (5)
  - ALANINE AMINOTRANSFERASE INCREASED [None]
  - ASPARTATE AMINOTRANSFERASE INCREASED [None]
  - BLOOD ALKALINE PHOSPHATASE INCREASED [None]
  - BLOOD CREATININE INCREASED [None]
  - GAMMA-GLUTAMYLTRANSFERASE INCREASED [None]
